FAERS Safety Report 15807877 (Version 1)
Quarter: 2018Q4

REPORT INFORMATION
  Report Type: Spontaneous
  Country: US (occurrence: US)
  Receive Date: 20181214
  Receipt Date: 20181214
  Transmission Date: 20190205
  Serious: Yes (Hospitalization)
  Sender: FDA-Public Use
  Company Number: None

PATIENT
  Sex: Male

DRUGS (10)
  1. ALPRAZOLAM. [Concomitant]
     Active Substance: ALPRAZOLAM
  2. DEPAKOTE [Concomitant]
     Active Substance: DIVALPROEX SODIUM
  3. IPRATROPIUM [Concomitant]
     Active Substance: IPRATROPIUM
  4. MULTIVITAMIN [Concomitant]
     Active Substance: VITAMINS
  5. RITONAVIR. [Concomitant]
     Active Substance: RITONAVIR
  6. SPIRIVA [Concomitant]
     Active Substance: TIOTROPIUM BROMIDE MONOHYDRATE
  7. SERTRALINE [Concomitant]
     Active Substance: SERTRALINE HYDROCHLORIDE
  8. PREZISTA [Concomitant]
     Active Substance: DARUNAVIR ETHANOLATE
  9. ERIVEDGE [Suspect]
     Active Substance: VISMODEGIB
     Indication: CARCINOID TUMOUR
     Route: 048
     Dates: start: 20180202
  10. CYCLOBENZAPRINE. [Concomitant]
     Active Substance: CYCLOBENZAPRINE

REACTIONS (1)
  - Hospitalisation [None]
